FAERS Safety Report 21631149 (Version 5)
Quarter: 2023Q1

REPORT INFORMATION
  Report Type: Report from Study
  Country: US (occurrence: US)
  Receive Date: 20221123
  Receipt Date: 20230109
  Transmission Date: 20230418
  Serious: Yes (Life-Threatening)
  Sender: FDA-Public Use
  Company Number: US-002147023-NVSC2022US259030

PATIENT
  Age: 71 Year
  Sex: Female

DRUGS (2)
  1. LEQVIO [Suspect]
     Active Substance: INCLISIRAN SODIUM
     Indication: Product used for unknown indication
     Dosage: UNK
     Route: 058
     Dates: start: 20220901
  2. LEQVIO [Suspect]
     Active Substance: INCLISIRAN SODIUM
     Dosage: UNK
     Route: 058
     Dates: start: 20220921

REACTIONS (12)
  - Feeling abnormal [Unknown]
  - Hot flush [Recovering/Resolving]
  - Nasopharyngitis [Unknown]
  - Presyncope [Unknown]
  - Depression [Recovering/Resolving]
  - Breast pain [Recovering/Resolving]
  - Spondylitis [Unknown]
  - Pain [Unknown]
  - Menopausal symptoms [Recovering/Resolving]
  - Arthralgia [Unknown]
  - Vomiting [Recovering/Resolving]
  - Drug hypersensitivity [Unknown]

NARRATIVE: CASE EVENT DATE: 20220901
